FAERS Safety Report 9556278 (Version 2)
Quarter: 2014Q3

REPORT INFORMATION
  Report Type: Spontaneous
  Country: US (occurrence: None)
  Receive Date: 20130815
  Receipt Date: 20140815
  Transmission Date: 20150326
  Serious: Yes (Hospitalization)
  Sender: FDA-Public Use
  Company Number: ADR-2013-01003

PATIENT
  Age: 56 Year
  Sex: Female

DRUGS (2)
  1. BACLOFEN INTRATHECAL [Suspect]
     Active Substance: BACLOFEN
     Indication: BACK PAIN
  2. FENTANYL. [Concomitant]
     Active Substance: FENTANYL

REACTIONS (2)
  - Muscle spasms [None]
  - Nausea [None]

NARRATIVE: CASE EVENT DATE: 20130607
